FAERS Safety Report 9536320 (Version 1)
Quarter: 2013Q2

REPORT INFORMATION
  Report Type: Spontaneous
  Country: US (occurrence: None)
  Receive Date: 20130507
  Receipt Date: 20130507
  Transmission Date: 20140414
  Serious: No
  Sender: FDA-Public Use
  Company Number: PHEH2011US012006

PATIENT
  Age: 11 Year
  Sex: Male

DRUGS (7)
  1. AFINITOR (RAD) TABLET, 10MG [Suspect]
     Indication: TUBEROUS SCLEROSIS
     Route: 048
     Dates: start: 20111114
  2. LAMICTAL (LAMOTRIGINE) [Concomitant]
  3. TRILEPTAL (OXCARBAZEPINE) [Concomitant]
  4. CLONIDINE (CLONIDINE) [Concomitant]
  5. ATIVAN (LORAZEPAM) [Concomitant]
  6. DIASTAT (DIAZEPAM) [Concomitant]
  7. VITAMINS NOS (VITAMINS NOS) [Concomitant]

REACTIONS (5)
  - Wrong technique in drug usage process [None]
  - Stomatitis [None]
  - Therapeutic response decreased [None]
  - Drug level increased [None]
  - Influenza [None]
